FAERS Safety Report 4677547-6 (Version None)
Quarter: 2005Q2

REPORT INFORMATION
  Report Type: 
  Country: None (occurrence: None)
  Receive Date: 20050527
  Receipt Date: 20050527
  Transmission Date: 20051028
  Serious: Yes (Death)
  Sender: FDA-Public Use
  Company Number: None

PATIENT
  Age: 63 Year
  Sex: Female
  Weight: 63 kg

DRUGS (7)
  1. SYNERCID [Suspect]
     Indication: ENTEROCOCCAL INFECTION
     Dosage: 450 MG  Q8H  INTRAVENOUS
     Route: 042
     Dates: start: 20050213, end: 20050217
  2. AMIKACIN [Concomitant]
  3. AMPHOTERICIN B BLADDER WASHES [Concomitant]
  4. CEFEPIME [Concomitant]
  5. CIPR [Concomitant]
  6. IMIPENEM [Concomitant]
  7. VORICONAZOLE [Concomitant]

REACTIONS (3)
  - BLOOD BILIRUBIN INCREASED [None]
  - HEPATIC FAILURE [None]
  - LIVER FUNCTION TEST ABNORMAL [None]
